FAERS Safety Report 12759418 (Version 1)
Quarter: 2016Q3

REPORT INFORMATION
  Report Type: Spontaneous
  Country: US (occurrence: US)
  Receive Date: 20160919
  Receipt Date: 20160919
  Transmission Date: 20161109
  Serious: Yes (Death, Other)
  Sender: FDA-Public Use
  Company Number: None

PATIENT
  Age: 80 Year
  Sex: Female
  Weight: 102.9 kg

DRUGS (1)
  1. ADRENALIN [Suspect]
     Active Substance: EPINEPHRINE
     Indication: ANGIOPATHY
     Dosage: OTHER STRENGTH:;OTHER DOSE:;OTHER FREQUENCY:DRIP;OTHER ROUTE:
     Route: 041

REACTIONS (1)
  - Incorrect product formulation administered [None]

NARRATIVE: CASE EVENT DATE: 20160326
